FAERS Safety Report 6426231-7 (Version None)
Quarter: 2009Q4

REPORT INFORMATION
  Report Type: 
  Country: None (occurrence: None)
  Receive Date: 20091103
  Receipt Date: 20091103
  Transmission Date: 20100525
  Serious: No
  Sender: FDA-Public Use
  Company Number: None

PATIENT
  Age: 83 Year
  Sex: Male

DRUGS (1)
  1. RITUXIMAB [Suspect]
     Indication: CHRONIC LYMPHOCYTIC LEUKAEMIA
     Dosage: 700 MG OTHER IV
     Route: 042
     Dates: start: 20081008

REACTIONS (3)
  - CHILLS [None]
  - DISCOMFORT [None]
  - INFUSION RELATED REACTION [None]
